FAERS Safety Report 9795615 (Version 2)
Quarter: 2014Q1

REPORT INFORMATION
  Report Type: Spontaneous
  Country: US (occurrence: US)
  Receive Date: 20140103
  Receipt Date: 20140331
  Transmission Date: 20141002
  Serious: No
  Sender: FDA-Public Use
  Company Number: US-PFIZER INC-2013374141

PATIENT
  Age: 59 Year
  Sex: Female
  Weight: 83.9 kg

DRUGS (4)
  1. EFFEXOR XR [Suspect]
     Indication: MIGRAINE
     Dosage: 150 MG, UNK
     Dates: end: 20131228
  2. PREMARIN [Concomitant]
     Indication: POSTOPERATIVE CARE
     Dosage: UNK
  3. RELPAX [Concomitant]
     Indication: MIGRAINE
     Dosage: UNK, AS NEEDED
  4. TOPAMAX [Concomitant]
     Indication: MIGRAINE
     Dosage: 200 MG, UNK

REACTIONS (5)
  - Drug withdrawal syndrome [Not Recovered/Not Resolved]
  - Nervousness [Not Recovered/Not Resolved]
  - Feeling abnormal [Not Recovered/Not Resolved]
  - Screaming [Not Recovered/Not Resolved]
  - Intentional drug misuse [Unknown]
